FAERS Safety Report 5811046-0 (Version None)
Quarter: 2008Q3

REPORT INFORMATION
  Report Type: 
  Country: None (occurrence: None)
  Receive Date: 20080710
  Receipt Date: 20080625
  Transmission Date: 20090109
  Serious: Yes (Death)
  Sender: FDA-Public Use
  Company Number: 19692

PATIENT
  Age: 30 Year
  Sex: Female
  Weight: 59 kg

DRUGS (14)
  1. CITALOXAN. MFR.:  MAYNE [Suspect]
     Indication: HODGKIN'S DISEASE
     Dosage: 3240 MG TOTAL IV
     Route: 042
     Dates: start: 20080224, end: 20080224
  2. CISPLATIN [Concomitant]
  3. ETOPOSIDE [Concomitant]
  4. METHYLPREDNISOLONE HEMISUCCINATE [Concomitant]
  5. GRANISETRON HCL [Concomitant]
  6. MANNITOL [Concomitant]
  7. SORBITOL [Concomitant]
  8. ALLOPURINOL [Concomitant]
  9. INSULIN HUMAN MONOCOMPONENT [Concomitant]
  10. OMEPRAZOLE [Concomitant]
  11. HYDROXYZINE [Concomitant]
  12. CODEINE SUL TAB [Concomitant]
  13. PHENYLTOLOXAMINE [Concomitant]
  14. ALPRAZOLAM [Concomitant]

REACTIONS (9)
  - CYANOSIS [None]
  - DYSPNOEA [None]
  - FIBRIN D DIMER INCREASED [None]
  - HAEMOCONCENTRATION [None]
  - HYPOXIA [None]
  - LEUKOCYTOSIS [None]
  - LUNG INFILTRATION [None]
  - RESPIRATORY FAILURE [None]
  - VOMITING [None]
